FAERS Safety Report 8012037-4 (Version None)
Quarter: 2011Q4

REPORT INFORMATION
  Report Type: 
  Country: None (occurrence: None)
  Receive Date: 20111228
  Receipt Date: 20111221
  Transmission Date: 20120403
  Serious: Yes (Hospitalization)
  Sender: FDA-Public Use
  Company Number: JP-GLAXOSMITHKLINE-B0770902A

PATIENT
  Sex: Female

DRUGS (8)
  1. PAXIL [Suspect]
     Dosage: 30MG PER DAY
     Route: 048
     Dates: start: 20111109
  2. AMERGE [Concomitant]
     Dosage: 2.5MG PER DAY
     Route: 048
     Dates: start: 20101012
  3. UNKNOWN DRUG [Concomitant]
     Dosage: 2MG PER DAY
     Route: 048
     Dates: start: 20100803, end: 20100817
  4. PAXIL [Suspect]
     Indication: SOCIAL PHOBIA
     Dosage: 10MG PER DAY
     Route: 048
     Dates: start: 20100405
  5. ZOLPIDEM [Suspect]
     Indication: PRODUCT USED FOR UNKNOWN INDICATION
     Dosage: 10MG PER DAY
     Route: 048
     Dates: start: 20100830
  6. FERROUS SULFATE TAB [Concomitant]
     Dosage: 105MG PER DAY
     Route: 048
     Dates: start: 20100803, end: 20100817
  7. PAXIL [Suspect]
     Dosage: 20MG PER DAY
     Route: 048
     Dates: start: 20100421
  8. NIPOLAZIN [Suspect]
     Indication: PRODUCT USED FOR UNKNOWN INDICATION
     Route: 048
     Dates: start: 20100830

REACTIONS (1)
  - LEUKOENCEPHALOPATHY [None]
